FAERS Safety Report 7293183-X (Version None)
Quarter: 2011Q1

REPORT INFORMATION
  Report Type: 
  Country: None (occurrence: None)
  Receive Date: 20110215
  Receipt Date: 20110208
  Transmission Date: 20110831
  Serious: Yes (Other)
  Sender: FDA-Public Use
  Company Number: US-PFIZER INC-US-WYE-H18092510

PATIENT
  Sex: Male
  Weight: 116.6 kg

DRUGS (16)
  1. EFFEXOR [Suspect]
     Route: 065
  2. ACETYLSALICYLIC ACID [Concomitant]
  3. METFORMIN [Concomitant]
  4. TRAMADOL [Concomitant]
  5. LYRICA [Suspect]
     Indication: DIABETIC NEUROPATHY
     Dosage: 75.0 MG, 1X/DAY
     Route: 048
     Dates: start: 20080101
  6. GLIPIZIDE [Concomitant]
  7. ATENOLOL [Concomitant]
  8. GEMFIBROZIL [Concomitant]
  9. TERAZOSIN [Concomitant]
  10. NORCO [Concomitant]
     Route: 065
  11. AMLODIPINE [Concomitant]
  12. LASIX [Concomitant]
  13. LYRICA [Suspect]
     Indication: FIBROMYALGIA
     Dosage: 75.0 MG, 2X/DAY
     Route: 048
     Dates: end: 20080901
  14. LISINOPRIL [Concomitant]
  15. OMEPRAZOLE [Concomitant]
  16. CRESTOR [Concomitant]

REACTIONS (8)
  - ANXIETY [None]
  - MALAISE [None]
  - CONDITION AGGRAVATED [None]
  - PARAESTHESIA [None]
  - HYPOAESTHESIA [None]
  - BIPOLAR DISORDER [None]
  - DEPRESSION [None]
  - PANIC ATTACK [None]
